FAERS Safety Report 5645824-8 (Version None)
Quarter: 2008Q1

REPORT INFORMATION
  Report Type: 
  Country: None (occurrence: None)
  Receive Date: 20080229
  Receipt Date: 20080219
  Transmission Date: 20080703
  Serious: Yes (Other)
  Sender: FDA-Public Use
  Company Number: US-PFIZER INC-2008003473

PATIENT
  Sex: Male
  Weight: 81.6 kg

DRUGS (3)
  1. CHANTIX [Suspect]
     Indication: SMOKING CESSATION THERAPY
     Route: 048
     Dates: start: 20080108, end: 20080110
  2. LISINOPRIL [Concomitant]
     Route: 048
  3. CLONAZEPAM [Concomitant]
     Route: 048

REACTIONS (6)
  - ANGER [None]
  - ANXIETY [None]
  - CRYING [None]
  - HALLUCINATION, AUDITORY [None]
  - MENTAL IMPAIRMENT [None]
  - PARANOIA [None]
